FAERS Safety Report 6247138-4 (Version None)
Quarter: 2009Q2

REPORT INFORMATION
  Report Type: 
  Country: None (occurrence: None)
  Receive Date: 20090626
  Receipt Date: 20090625
  Transmission Date: 20091009
  Serious: Yes (Death, Other)
  Sender: FDA-Public Use
  Company Number: US-ASTRAZENECA-2008UW26984

PATIENT
  Age: 39 Year
  Sex: Male
  Weight: 65.8 kg

DRUGS (3)
  1. SEROQUEL [Suspect]
     Indication: DEPRESSION
     Route: 048
     Dates: start: 20040101, end: 20070201
  2. GEODON [Concomitant]
     Dates: start: 20070101
  3. LEXAPRO [Concomitant]
     Dates: start: 20070101, end: 20090101

REACTIONS (5)
  - ABSCESS [None]
  - BLOOD CHOLESTEROL INCREASED [None]
  - DEATH [None]
  - DIABETES MELLITUS [None]
  - NEUROPATHY PERIPHERAL [None]
